FAERS Safety Report 10448056 (Version 2)
Quarter: 2014Q3

REPORT INFORMATION
  Report Type: Spontaneous
  Country: JP (occurrence: JP)
  Receive Date: 20140911
  Receipt Date: 20140911
  Transmission Date: 20150326
  Serious: Yes (Life-Threatening, Hospitalization)
  Sender: FDA-Public Use
  Company Number: JP-BAYER-2014-116736

PATIENT
  Age: 55 Year
  Sex: Female
  Weight: 33 kg

DRUGS (6)
  1. GASTER [Concomitant]
     Active Substance: FAMOTIDINE
     Dosage: DAILY DOSE 20 MG
     Route: 048
  2. STIVARGA [Suspect]
     Active Substance: REGORAFENIB
     Indication: COLON CANCER
     Dosage: 160 MG, QD (3 WEEKS ON AND 1 WEEK OFF)
     Route: 048
     Dates: start: 20140605, end: 20140616
  3. CELECOXIB. [Concomitant]
     Active Substance: CELECOXIB
     Dosage: DAILY DOSE 200 MG
     Route: 048
     Dates: start: 20140529, end: 20140616
  4. GOSHAJINKIGAN [Concomitant]
     Active Substance: HERBALS
     Indication: COLON CANCER
     Dosage: DAILY DOSE 7.5 G
     Route: 048
  5. HIRUDOID [Concomitant]
     Active Substance: GLYCOSAMINOGLYCANS
     Indication: DRUG TOXICITY PROPHYLAXIS
     Dosage: UNK
     Route: 061
  6. SENNOSIDE [Concomitant]
     Active Substance: SENNOSIDES
     Dosage: DAILY DOSE 3 DF
     Route: 048
     Dates: start: 20140612, end: 20140616

REACTIONS (1)
  - Stevens-Johnson syndrome [Recovered/Resolved]

NARRATIVE: CASE EVENT DATE: 20140616
